FAERS Safety Report 24278909 (Version 10)
Quarter: 2025Q1

REPORT INFORMATION
  Report Type: Spontaneous
  Country: US (occurrence: US)
  Receive Date: 20240903
  Receipt Date: 20250310
  Transmission Date: 20250409
  Serious: No
  Sender: PFIZER
  Company Number: US-PFIZER INC-202400049751

PATIENT
  Age: 67 Year
  Sex: Female
  Weight: 59.41 kg

DRUGS (11)
  1. CIBINQO [Suspect]
     Active Substance: ABROCITINIB
     Dosage: 50 MG, 1X/DAY, 30-DAY SUPPLY
     Route: 048
     Dates: start: 20240201, end: 20240221
  2. CIBINQO [Suspect]
     Active Substance: ABROCITINIB
     Dosage: 100 MG, 1X/DAY, 30-DAY SUPPLY
     Route: 048
     Dates: start: 20240222, end: 20240408
  3. CIBINQO [Suspect]
     Active Substance: ABROCITINIB
     Dosage: 100 MG, 2X/DAY
     Route: 048
     Dates: start: 20240409, end: 20240716
  4. CIBINQO [Suspect]
     Active Substance: ABROCITINIB
     Dosage: 100 MG, 2X/DAY (100MG 1 TABLET BY MOUTH 2 TIMES DAILY)
     Route: 048
     Dates: start: 2024
  5. CIBINQO [Suspect]
     Active Substance: ABROCITINIB
     Dosage: 50 MG, 2X/DAY (TAKE 1 TABLET (50MG) TWICE A DAY)
  6. LEVOTHYROXINE [Concomitant]
     Active Substance: LEVOTHYROXINE
  7. LYRICA [Concomitant]
     Active Substance: PREGABALIN
  8. PROPRANOLOL HYDROCHLORIDE [Concomitant]
     Active Substance: PROPRANOLOL HYDROCHLORIDE
  9. TRAZODONE [Concomitant]
     Active Substance: TRAZODONE HYDROCHLORIDE
  10. VENLAFAXINE [Concomitant]
     Active Substance: VENLAFAXINE HYDROCHLORIDE
  11. WELLBUTRIN [Concomitant]
     Active Substance: BUPROPION HYDROCHLORIDE

REACTIONS (4)
  - Vision blurred [Not Recovered/Not Resolved]
  - Pruritus [Unknown]
  - Drug intolerance [Unknown]
  - Off label use [Unknown]

NARRATIVE: CASE EVENT DATE: 20240409
